FAERS Safety Report 9733392 (Version 1)
Quarter: 2013Q4

REPORT INFORMATION
  Report Type: Spontaneous
  Country: US (occurrence: US)
  Receive Date: 20131205
  Receipt Date: 20131205
  Transmission Date: 20140711
  Serious: Yes (Death)
  Sender: FDA-Public Use
  Company Number: US-ROCHE-1313706

PATIENT
  Sex: Male

DRUGS (6)
  1. XELODA [Suspect]
     Indication: PRODUCT USED FOR UNKNOWN INDICATION
     Dosage: LAST MEDICATION WAS FILLED ON 07/OCT/2013 FOR 28 DAY.
     Route: 048
     Dates: start: 20130519
  2. MINOCYCLINE [Concomitant]
  3. ASPIRIN [Concomitant]
  4. COMPAZINE [Concomitant]
  5. ZOFRAN [Concomitant]
  6. MEGACE [Concomitant]

REACTIONS (1)
  - Death [Fatal]
